FAERS Safety Report 5279690-X (Version None)
Quarter: 2007Q1

REPORT INFORMATION
  Report Type: 
  Country: None (occurrence: None)
  Receive Date: 20070323
  Receipt Date: 20070307
  Transmission Date: 20070707
  Serious: Yes (Death, Congenital Anomaly, Other)
  Sender: FDA-Public Use
  Company Number: 8022461

PATIENT

DRUGS (2)
  1. KEPPRA [Suspect]
     Indication: EPILEPSY
     Dosage: 1750 MG TRP
     Route: 064
     Dates: start: 20061126, end: 20070101
  2. KEPPRA [Suspect]
     Indication: EPILEPSY
     Dosage: 2000 MG TRP
     Route: 064
     Dates: start: 20070101

REACTIONS (4)
  - DRUG EXPOSURE BEFORE PREGNANCY [None]
  - DRUG EXPOSURE DURING PREGNANCY [None]
  - INTRA-UTERINE DEATH [None]
  - TRISOMY 18 [None]
